FAERS Safety Report 8979262 (Version 2)
Quarter: 2014Q1

REPORT INFORMATION
  Report Type: Spontaneous
  Country: US (occurrence: US)
  Receive Date: 20121221
  Receipt Date: 20140131
  Transmission Date: 20141002
  Serious: Yes (Death)
  Sender: FDA-Public Use
  Company Number: US-B.I. PHARMACEUTICALS,INC./RIDGEFIELD-2012-BI-03769BP

PATIENT
  Sex: Male
  Weight: 80.29 kg

DRUGS (11)
  1. PRADAXA [Suspect]
     Indication: ANTICOAGULANT THERAPY
     Dosage: 300 MG
     Route: 048
     Dates: start: 20110802, end: 20111214
  2. LASIX [Concomitant]
  3. SYMBICORT [Concomitant]
  4. SPIRIVA [Concomitant]
  5. TAMSULOSIN [Concomitant]
  6. TIKOSYN [Concomitant]
  7. METOPROLOL [Concomitant]
  8. POTASSIUM [Concomitant]
  9. LANTUS [Concomitant]
  10. NITROGLYCERIN [Concomitant]
  11. OXYGEN [Concomitant]

REACTIONS (2)
  - Subarachnoid haemorrhage [Fatal]
  - Subdural haematoma [Fatal]
